FAERS Safety Report 6451581-8 (Version None)
Quarter: 2009Q4

REPORT INFORMATION
  Report Type: 
  Country: None (occurrence: None)
  Receive Date: 20091123
  Receipt Date: 20091117
  Transmission Date: 20100525
  Serious: Yes (Other)
  Sender: FDA-Public Use
  Company Number: BR-ABBOTT-09P-020-0603564-00

PATIENT
  Sex: Male
  Weight: 84 kg

DRUGS (5)
  1. HUMIRA [Suspect]
     Indication: CROHN'S DISEASE
     Route: 058
     Dates: end: 20070101
  2. MESALAZINE [Concomitant]
     Indication: CROHN'S DISEASE
     Route: 048
     Dates: start: 19990101
  3. AZATHIOPRINE [Concomitant]
     Indication: IMMUNE SYSTEM DISORDER
     Route: 048
     Dates: end: 20070101
  4. REMICADE [Concomitant]
     Indication: CROHN'S DISEASE
     Route: 042
     Dates: end: 20060101
  5. UNKNOWN HOMEOPATHIC DRUG [Concomitant]
     Indication: ANXIETY

REACTIONS (4)
  - COUGH [None]
  - FISTULA [None]
  - PULMONARY MASS [None]
  - PYREXIA [None]
